FAERS Safety Report 4432816-X (Version None)
Quarter: 2004Q3

REPORT INFORMATION
  Report Type: 
  Country: None (occurrence: None)
  Receive Date: 20040726
  Receipt Date: 20040518
  Transmission Date: 20050211
  Serious: No
  Sender: FDA-Public Use
  Company Number: USA040567858

PATIENT
  Age: 74 Year
  Sex: Female
  Weight: 64 kg

DRUGS (12)
  1. FORTEO [Suspect]
     Indication: OSTEOPOROSIS
     Dosage: 20 UG DAY
     Dates: start: 20040512
  2. DIOVAN [Concomitant]
  3. ESTRADERM [Concomitant]
  4. PROGESTERONE [Concomitant]
  5. VITAMIN C [Concomitant]
  6. VITAMIN E [Concomitant]
  7. OMEGA - 3 FISH OIL [Concomitant]
  8. VITMIN B COMPLEX [Concomitant]
  9. GARLIC [Concomitant]
  10. CORAL CALCIUM DAILY [Concomitant]
  11. CALMAX [Concomitant]
  12. BEXTRA [Concomitant]

REACTIONS (3)
  - BONE PAIN [None]
  - CHILLS [None]
  - PAIN IN EXTREMITY [None]
